FAERS Safety Report 15693794 (Version 1)
Quarter: 2018Q4

REPORT INFORMATION
  Report Type: Spontaneous
  Country: US (occurrence: US)
  Receive Date: 20181206
  Receipt Date: 20181206
  Transmission Date: 20190205
  Serious: Yes (Hospitalization, Other)
  Sender: FDA-Public Use
  Company Number: US-ELI_LILLY_AND_COMPANY-US201811013797

PATIENT
  Sex: Female

DRUGS (3)
  1. HUMULIN N [Suspect]
     Active Substance: INSULIN HUMAN
     Indication: TYPE 1 DIABETES MELLITUS
     Dosage: UNK, QID
     Route: 065
     Dates: start: 1971
  2. HUMALOG [Suspect]
     Active Substance: INSULIN LISPRO
     Indication: TYPE 1 DIABETES MELLITUS
     Dosage: UNK, UNKNOWN
     Route: 065
  3. HUMULIN R [Suspect]
     Active Substance: INSULIN HUMAN
     Indication: TYPE 1 DIABETES MELLITUS
     Dosage: UNK, QID
     Route: 065
     Dates: start: 1971

REACTIONS (13)
  - Blood glucose decreased [Recovered/Resolved]
  - Basedow^s disease [Unknown]
  - Lung disorder [Recovered/Resolved]
  - Dyspnoea [Recovered/Resolved]
  - Blood glucose increased [Recovered/Resolved]
  - Rheumatoid arthritis [Unknown]
  - Fat tissue decreased [Recovered/Resolved]
  - Diabetes mellitus inadequate control [Unknown]
  - Malaise [Not Recovered/Not Resolved]
  - Chest pain [Recovered/Resolved]
  - Blood glucose decreased [Unknown]
  - Myocardial infarction [Recovered/Resolved]
  - Cardiac valve disease [Recovered/Resolved]

NARRATIVE: CASE EVENT DATE: 1971
